FAERS Safety Report 7490688-3 (Version None)
Quarter: 2011Q2

REPORT INFORMATION
  Report Type: 
  Country: None (occurrence: None)
  Receive Date: 20110519
  Receipt Date: 20110510
  Transmission Date: 20111010
  Serious: Yes (Other)
  Sender: FDA-Public Use
  Company Number: FR-SANOFI-AVENTIS-2011SA030510

PATIENT
  Sex: Male

DRUGS (1)
  1. ARAVA [Suspect]
     Route: 048
     Dates: start: 20101101, end: 20110401

REACTIONS (3)
  - FORCED EXPIRATORY VOLUME DECREASED [None]
  - ASTHMA [None]
  - EOSINOPHILIA [None]
